FAERS Safety Report 9886007 (Version 2)
Quarter: 2014Q1

REPORT INFORMATION
  Report Type: Report from Study
  Country: TR (occurrence: TR)
  Receive Date: 20140210
  Receipt Date: 20140217
  Transmission Date: 20141002
  Serious: Yes (Death)
  Sender: FDA-Public Use
  Company Number: TR-GLAXOSMITHKLINE-B0967401A

PATIENT
  Age: 34 Year
  Sex: Female

DRUGS (1)
  1. DABRAFENIB [Suspect]
     Indication: MALIGNANT MELANOMA
     Route: 048
     Dates: start: 20140122, end: 20140201

REACTIONS (2)
  - Cardiac arrest [Fatal]
  - Disease progression [Fatal]
